FAERS Safety Report 6569903-6 (Version None)
Quarter: 2010Q1

REPORT INFORMATION
  Report Type: 
  Country: None (occurrence: None)
  Receive Date: 20100204
  Receipt Date: 20100127
  Transmission Date: 20100710
  Serious: Yes (Other)
  Sender: FDA-Public Use
  Company Number: PHHY2009BR47310

PATIENT
  Sex: Female
  Weight: 49 kg

DRUGS (2)
  1. FORASEQ [Suspect]
     Dosage: BID
     Dates: start: 20091027, end: 20091028
  2. FORASEQ [Suspect]
     Dosage: TID, PRN

REACTIONS (10)
  - BRONCHITIS [None]
  - BURNING SENSATION [None]
  - COUGH [None]
  - DRUG INEFFECTIVE [None]
  - DYSPNOEA [None]
  - HAEMATOMA [None]
  - HEADACHE [None]
  - LARYNGOSPASM [None]
  - VASODILATATION [None]
  - VOMITING [None]
